FAERS Safety Report 6024343-3 (Version None)
Quarter: 2008Q4

REPORT INFORMATION
  Report Type: 
  Country: None (occurrence: None)
  Receive Date: 20081222
  Receipt Date: 20081008
  Transmission Date: 20090506
  Serious: No
  Sender: FDA-Public Use
  Company Number: SPV1-2008-02166

PATIENT
  Age: 7 Year
  Sex: Male
  Weight: 29.5 kg

DRUGS (1)
  1. VYVANSE [Suspect]
     Indication: ATTENTION DEFICIT/HYPERACTIVITY DISORDER
     Dates: start: 20080401, end: 20080401

REACTIONS (3)
  - DRUG INEFFECTIVE [None]
  - IRRITABILITY [None]
  - NEGATIVISM [None]
